FAERS Safety Report 9450352 (Version 2)
Quarter: 2013Q3

REPORT INFORMATION
  Report Type: Spontaneous
  Country: JP (occurrence: JP)
  Receive Date: 20130809
  Receipt Date: 20130823
  Transmission Date: 20140515
  Serious: Yes (Death, Hospitalization, Other)
  Sender: FDA-Public Use
  Company Number: JP-GENZYME-THYM-1003954

PATIENT
  Age: 42 Year
  Sex: Male
  Weight: 92 kg

DRUGS (13)
  1. THYMOGLOBULINE [Suspect]
     Indication: LIVER TRANSPLANT REJECTION
     Dosage: 1.3 UNK, UNK
     Route: 065
     Dates: start: 20130117, end: 20130123
  2. SOL-MELCORT [Suspect]
     Indication: LIVER TRANSPLANT REJECTION
     Dosage: PULSE
     Route: 065
     Dates: start: 20121221, end: 20121223
  3. SOL-MELCORT [Suspect]
     Dosage: PULSE UNK
     Route: 065
     Dates: start: 20121230, end: 20130101
  4. SOL-MELCORT [Suspect]
     Dosage: PULSE UNK
     Route: 065
     Dates: start: 20130109, end: 20130111
  5. SOL-MELCORT [Suspect]
     Dosage: UNK
     Route: 065
     Dates: start: 20130109, end: 20130120
  6. SOLU-MEDROL [Concomitant]
     Indication: LIVER TRANSPLANT REJECTION
     Dosage: UNK
     Route: 065
  7. PREDONINE [Concomitant]
     Indication: LIVER TRANSPLANT REJECTION
     Dosage: UNK
     Route: 065
     Dates: start: 20080313, end: 20130213
  8. CELLCEPT [Concomitant]
     Indication: PRODUCT USED FOR UNKNOWN INDICATION
     Dosage: UNK
     Route: 065
     Dates: start: 20080304, end: 20130213
  9. GRACEPTOR [Concomitant]
     Indication: PRODUCT USED FOR UNKNOWN INDICATION
     Dosage: UNK
     Route: 065
     Dates: start: 20091021, end: 20130213
  10. UNASYN [Concomitant]
     Indication: PRODUCT USED FOR UNKNOWN INDICATION
     Dosage: UNK
     Route: 042
     Dates: start: 20130110, end: 20130118
  11. CRAVIT [Concomitant]
     Indication: PRODUCT USED FOR UNKNOWN INDICATION
     Dosage: UNK
     Route: 041
     Dates: start: 20130118, end: 20130213
  12. PROGRAF [Concomitant]
     Indication: PRODUCT USED FOR UNKNOWN INDICATION
     Dosage: UNK
     Route: 065
  13. ANTIFUNGALS [Concomitant]
     Indication: PROPHYLAXIS
     Dosage: UNK
     Route: 065
     Dates: start: 20130123

REACTIONS (3)
  - Hepatic function abnormal [Unknown]
  - Bronchopulmonary aspergillosis [Fatal]
  - Cytomegalovirus viraemia [Not Recovered/Not Resolved]
